FAERS Safety Report 4524753-7 (Version None)
Quarter: 2004Q4

REPORT INFORMATION
  Report Type: 
  Country: None (occurrence: None)
  Receive Date: 20041213
  Receipt Date: 20041129
  Transmission Date: 20050328
  Serious: Yes (Hospitalization)
  Sender: FDA-Public Use
  Company Number: IT-JNJFOC-20041106660

PATIENT
  Sex: Male
  Weight: 85 kg

DRUGS (6)
  1. REOPRO [Suspect]
     Dosage: 05.0 ML IN 050 ML DILUENT AT 04.0 ML/H
     Route: 042
  2. REOPRO [Suspect]
     Indication: ACUTE MYOCARDIAL INFARCTION
     Route: 042
  3. RETEPLASE [Suspect]
     Indication: ACUTE MYOCARDIAL INFARCTION
     Route: 042
  4. ACE INHIBITOR NOS [Concomitant]
  5. HEPARIN [Concomitant]
  6. HEPARIN [Concomitant]

REACTIONS (5)
  - CARDIAC ARREST [None]
  - DRUG INTERACTION [None]
  - EJECTION FRACTION DECREASED [None]
  - RESPIRATORY FAILURE [None]
  - VENTRICULAR FIBRILLATION [None]
